FAERS Safety Report 23751790 (Version 5)
Quarter: 2024Q3

REPORT INFORMATION
  Report Type: Spontaneous
  Country: US (occurrence: US)
  Receive Date: 20240417
  Receipt Date: 20240731
  Transmission Date: 20241017
  Serious: Yes (Death, Hospitalization, Other)
  Sender: GILEAD
  Company Number: US-GILEAD-2024-0669583

PATIENT
  Age: 73 Year
  Sex: Female

DRUGS (1)
  1. TECARTUS [Suspect]
     Active Substance: BREXUCABTAGENE AUTOLEUCEL
     Indication: Mantle cell lymphoma
     Dosage: UNK
     Route: 042
     Dates: start: 20240326

REACTIONS (13)
  - Death [Fatal]
  - Human herpesvirus 6 encephalitis [Unknown]
  - Pulmonary haemorrhage [Unknown]
  - Apnoea [Unknown]
  - Cytokine release syndrome [Recovered/Resolved]
  - Hypoxia [Unknown]
  - Immune effector cell-associated neurotoxicity syndrome [Unknown]
  - Mental status changes [Unknown]
  - Delirium [Unknown]
  - Seizure [Unknown]
  - Respiratory failure [Unknown]
  - Pyrexia [Unknown]
  - Human herpesvirus 6 infection [Unknown]

NARRATIVE: CASE EVENT DATE: 20240401
